FAERS Safety Report 8645339 (Version 3)
Quarter: 2013Q3

REPORT INFORMATION
  Report Type: Spontaneous
  Country: CH (occurrence: CH)
  Receive Date: 20120702
  Receipt Date: 20130730
  Transmission Date: 20140515
  Serious: Yes (Other)
  Sender: FDA-Public Use
  Company Number: CH-JNJFOC-20120612567

PATIENT
  Age: 16 Year
  Sex: Female

DRUGS (2)
  1. REMICADE [Suspect]
     Indication: CROHN^S DISEASE
     Route: 042
  2. REMICADE [Suspect]
     Indication: CROHN^S DISEASE
     Dosage: SIXTH INFUSION
     Route: 042

REACTIONS (4)
  - Staphylococcal infection [Recovered/Resolved]
  - Rash pustular [Recovering/Resolving]
  - Alopecia scarring [Not Recovered/Not Resolved]
  - Crohn^s disease [Unknown]
